FAERS Safety Report 7889350-4 (Version None)
Quarter: 2011Q4

REPORT INFORMATION
  Report Type: 
  Country: None (occurrence: None)
  Receive Date: 20111103
  Receipt Date: 20100816
  Transmission Date: 20120403
  Serious: No
  Sender: FDA-Public Use
  Company Number: US-BAYER-201030674NA

PATIENT
  Age: 68 Year
  Sex: Female

DRUGS (4)
  1. LIPITOR [Concomitant]
  2. EVISTA [Concomitant]
  3. ACTONEL [Concomitant]
  4. AVELOX [Suspect]
     Dosage: 400 MG, QD
     Route: 048
     Dates: start: 20100719, end: 20100802

REACTIONS (3)
  - PYREXIA [None]
  - PRURITUS [None]
  - RASH [None]
